FAERS Safety Report 8618803-6 (Version None)
Quarter: 2012Q3

REPORT INFORMATION
  Report Type: 
  Country: None (occurrence: None)
  Receive Date: 20120824
  Receipt Date: 20120817
  Transmission Date: 20120928
  Serious: Yes (Hospitalization, Other)
  Sender: FDA-Public Use
  Company Number: US-JNJFOC-20120810136

PATIENT
  Sex: Female
  Weight: 60 kg

DRUGS (3)
  1. CYCLOSPORINE [Concomitant]
     Indication: WOUND DEHISCENCE
     Dates: start: 20111001
  2. PREDNISONE TAB [Concomitant]
     Indication: WOUND DEHISCENCE
     Dates: start: 20110801
  3. REMICADE [Suspect]
     Indication: PYODERMA GANGRENOSUM
     Route: 042
     Dates: start: 20111122, end: 20120106

REACTIONS (10)
  - WEIGHT DECREASED [None]
  - MYCOBACTERIAL INFECTION [None]
  - DRUG INEFFECTIVE [None]
  - LYMPHADENOPATHY [None]
  - GRANULOMA [None]
  - BACILLUS INFECTION [None]
  - BREAST ABSCESS [None]
  - BREAST MASS [None]
  - CLOSTRIDIAL INFECTION [None]
  - OTOTOXICITY [None]
